FAERS Safety Report 8902676 (Version 1)
Quarter: 2012Q4

REPORT INFORMATION
  Report Type: 
  Country: IL (occurrence: IL)
  Receive Date: 20121112
  Receipt Date: 20121112
  Transmission Date: 20130627
  Serious: Yes (Hospitalization, Other)
  Sender: FDA-Public Use
  Company Number: PHHY2012IL103638

PATIENT
  Age: 36 Year
  Sex: Male

DRUGS (1)
  1. GILENYA [Suspect]
     Indication: MULTIPLE SCLEROSIS
     Dosage: 0.5 mg, QD
     Route: 048
     Dates: start: 20120829

REACTIONS (6)
  - Concussion [Unknown]
  - Head injury [Unknown]
  - Asthenia [Unknown]
  - Vomiting [Unknown]
  - Confusional state [Recovered/Resolved]
  - Fall [Unknown]
